FAERS Safety Report 9572421 (Version 1)
Quarter: 2013Q3

REPORT INFORMATION
  Report Type: Spontaneous
  Country: US (occurrence: None)
  Receive Date: 20130930
  Receipt Date: 20130930
  Transmission Date: 20140515
  Serious: Yes (Life-Threatening, Hospitalization)
  Sender: FDA-Public Use
  Company Number: None

PATIENT
  Age: 44 Year
  Sex: Female
  Weight: 63.5 kg

DRUGS (2)
  1. LAMOTRIGINE [Suspect]
     Indication: BIPOLAR I DISORDER
     Route: 048
     Dates: start: 20130819, end: 20130824
  2. LAMOTRIGINE [Suspect]
     Route: 048
     Dates: start: 20130819, end: 20130824

REACTIONS (4)
  - Vertigo [None]
  - Convulsion [None]
  - Product quality issue [None]
  - Product contamination [None]
